FAERS Safety Report 4359096-8 (Version None)
Quarter: 2004Q2

REPORT INFORMATION
  Report Type: 
  Country: None (occurrence: None)
  Receive Date: 20040517
  Receipt Date: 20040517
  Transmission Date: 20050107
  Serious: No
  Sender: FDA-Public Use
  Company Number: None

PATIENT
  Age: 33 Year
  Sex: Male
  Weight: 97.5234 kg

DRUGS (1)
  1. ELIDEL [Suspect]
     Indication: SEBORRHOEIC DERMATITIS
     Dosage: BID (R) CHEEK
     Dates: start: 20040407, end: 20040430

REACTIONS (3)
  - RASH PAPULAR [None]
  - RASH PUSTULAR [None]
  - ROSACEA [None]
